FAERS Safety Report 10954933 (Version 1)
Quarter: 2015Q1

REPORT INFORMATION
  Report Type: Spontaneous
  Country: BR (occurrence: BR)
  Receive Date: 20150325
  Receipt Date: 20150325
  Transmission Date: 20150721
  Serious: Yes (Other)
  Sender: FDA-Public Use
  Company Number: PHHY2015BR035407

PATIENT
  Sex: Female

DRUGS (4)
  1. TRILEPTAL [Suspect]
     Active Substance: OXCARBAZEPINE
     Indication: EPILEPSY
     Dosage: 3 DF, QD
     Route: 048
  2. GARDENAL [Concomitant]
     Active Substance: PHENOBARBITAL
     Indication: EPILEPSY
     Dosage: 1 DF, QD
     Route: 048
  3. TRILEPTAL [Suspect]
     Active Substance: OXCARBAZEPINE
     Dosage: 1800 MG, UNK
     Route: 048
  4. GARDENAL [Concomitant]
     Active Substance: PHENOBARBITAL
     Dosage: 2 DF, QD
     Route: 048

REACTIONS (7)
  - Weight increased [Recovered/Resolved]
  - Gastrooesophageal reflux disease [Recovering/Resolving]
  - Rib fracture [Unknown]
  - Labyrinthitis [Recovering/Resolving]
  - Traumatic lung injury [Unknown]
  - Splenic injury [Unknown]
  - Seizure [Unknown]

NARRATIVE: CASE EVENT DATE: 2013
